FAERS Safety Report 9061770 (Version 5)
Quarter: 2015Q1

REPORT INFORMATION
  Report Type: Spontaneous
  Country: GB (occurrence: GB)
  Receive Date: 20130204
  Receipt Date: 20150115
  Transmission Date: 20150721
  Serious: Yes (Death, Hospitalization, Other)
  Sender: FDA-Public Use
  Company Number: PHFR2013GB000954

PATIENT
  Age: 52 Year
  Sex: Male

DRUGS (2)
  1. CLOZARIL [Suspect]
     Active Substance: CLOZAPINE
     Dosage: UNK
     Route: 065
  2. CLOZARIL [Suspect]
     Active Substance: CLOZAPINE
     Indication: SCHIZOPHRENIA
     Dosage: UNK
     Route: 048
     Dates: start: 20010701, end: 20130130

REACTIONS (15)
  - Electrocardiogram QT prolonged [Unknown]
  - Feeling abnormal [Unknown]
  - General physical health deterioration [Unknown]
  - Disturbance in attention [Unknown]
  - Pyrexia [Unknown]
  - Sudden death [Fatal]
  - Infection [Unknown]
  - Psychotic disorder [Unknown]
  - Neuroleptic malignant syndrome [Unknown]
  - Intestinal obstruction [Unknown]
  - Loss of consciousness [Unknown]
  - No therapeutic response [Unknown]
  - Tachycardia [Unknown]
  - Delirium [Unknown]
  - Urinary tract infection [Unknown]

NARRATIVE: CASE EVENT DATE: 201212
